FAERS Safety Report 8888487 (Version 2)
Quarter: 2013Q1

REPORT INFORMATION
  Report Type: Spontaneous
  Country: FR (occurrence: FR)
  Receive Date: 20121106
  Receipt Date: 20130212
  Transmission Date: 20140127
  Serious: Yes (Death, Hospitalization, Other)
  Sender: FDA-Public Use
  Company Number: FR-EISAI INC-E7273-00344-SPO-FR

PATIENT
  Age: 65 None
  Sex: Male

DRUGS (8)
  1. TARGRETIN CAPSULES [Suspect]
     Indication: MYCOSIS FUNGOIDES
     Route: 048
     Dates: start: 200911, end: 20111205
  2. INTERFERON ALFA 2A [Suspect]
     Indication: MYCOSIS FUNGOIDES
     Dosage: 3 MUI
     Dates: start: 200911
  3. APREPITANT [Suspect]
     Indication: PRURITUS
     Dates: start: 201109
  4. LEVOTHYROXINE [Concomitant]
     Route: 048
  5. LAROXYL [Concomitant]
     Dosage: 10 DROPS
     Route: 048
  6. LEXOMIL [Concomitant]
  7. XERIAL 50 [Concomitant]
  8. DEXERYL [Concomitant]

REACTIONS (8)
  - Death [Fatal]
  - Renal failure acute [Unknown]
  - Hypernatraemia [Unknown]
  - Dehydration [Fatal]
  - Aphagia [Unknown]
  - Decreased appetite [Unknown]
  - Asthenia [Unknown]
  - Drug interaction [Fatal]
